FAERS Safety Report 24374870 (Version 2)
Quarter: 2024Q4

REPORT INFORMATION
  Report Type: Spontaneous
  Country: US (occurrence: US)
  Receive Date: 20240927
  Receipt Date: 20241010
  Transmission Date: 20250115
  Serious: Yes (Hospitalization)
  Sender: SANOFI AVENTIS
  Company Number: US-SA-2024SA279619

PATIENT
  Age: 33 Year
  Sex: Male

DRUGS (2)
  1. ALTUVIIIO [Suspect]
     Active Substance: EFANESOCTOCOG ALFA
     Indication: Factor VIII deficiency
     Dosage: 7700 IU, QW
     Route: 042
     Dates: start: 20240314
  2. ALTUVIIIO [Suspect]
     Active Substance: EFANESOCTOCOG ALFA
     Indication: Haemorrhage
     Dosage: 7700 IU, Q3D (AS NEEDED)
     Route: 042
     Dates: start: 20240314

REACTIONS (1)
  - Cholelithiasis [Not Recovered/Not Resolved]

NARRATIVE: CASE EVENT DATE: 20240905
